FAERS Safety Report 5814067-7 (Version None)
Quarter: 2008Q3

REPORT INFORMATION
  Report Type: 
  Country: None (occurrence: None)
  Receive Date: 20080717
  Receipt Date: 20080714
  Transmission Date: 20090109
  Serious: Yes (Other)
  Sender: FDA-Public Use
  Company Number: JP-BOEHRINGER INGELHEIM GMBH, GERMANY-2008-BP-10478NB

PATIENT
  Age: 5 Decade
  Sex: Male

DRUGS (2)
  1. MICARDIS [Suspect]
     Indication: HYPERTENSION
     Route: 048
     Dates: start: 20070501
  2. AMLODIPINE [Concomitant]
     Route: 048
     Dates: start: 20060901

REACTIONS (2)
  - ANAEMIA [None]
  - MELAENA [None]
